FAERS Safety Report 7343240-4 (Version None)
Quarter: 2011Q1

REPORT INFORMATION
  Report Type: 
  Country: None (occurrence: None)
  Receive Date: 20110310
  Receipt Date: 20110211
  Transmission Date: 20110831
  Serious: No
  Sender: FDA-Public Use
  Company Number: US-B.I. PHARMACEUTICALS,INC./RIDGEFIELD-2010-BP-15193BP

PATIENT
  Sex: Female

DRUGS (4)
  1. LOSARTAN POTASSIUM [Concomitant]
     Indication: HYPERTENSION
  2. ASPIRIN [Concomitant]
     Indication: HYPERTENSION
  3. PRADAXA [Suspect]
     Indication: ATRIAL FIBRILLATION
     Dosage: 300 MG
     Route: 048
     Dates: start: 20101206, end: 20101222
  4. METFORMIN [Concomitant]
     Indication: TYPE 2 DIABETES MELLITUS

REACTIONS (12)
  - PYREXIA [None]
  - HYPERSENSITIVITY [None]
  - STUPOR [None]
  - MALAISE [None]
  - URTICARIA [None]
  - NERVOUSNESS [None]
  - CRYING [None]
  - OROPHARYNGEAL PAIN [None]
  - ASTHENIA [None]
  - EAR PAIN [None]
  - PNEUMONIA [None]
  - DEPRESSED MOOD [None]
